FAERS Safety Report 5667696-8 (Version None)
Quarter: 2008Q1

REPORT INFORMATION
  Report Type: 
  Country: None (occurrence: None)
  Receive Date: 20080315
  Receipt Date: 20080204
  Transmission Date: 20080703
  Serious: No
  Sender: FDA-Public Use
  Company Number: US-ABBOTT-08P-163-0437043-00

PATIENT
  Sex: Female
  Weight: 67.646 kg

DRUGS (2)
  1. HUMIRA [Suspect]
     Indication: RHEUMATOID ARTHRITIS
     Dosage: SYRINGE
     Route: 058
     Dates: start: 20071101, end: 20080101
  2. HUMIRA [Suspect]
     Dosage: PEN
     Route: 058
     Dates: start: 20080101

REACTIONS (5)
  - ARTHRALGIA [None]
  - BACK PAIN [None]
  - DRUG INEFFECTIVE [None]
  - NECK PAIN [None]
  - PAIN IN EXTREMITY [None]
